FAERS Safety Report 7638326-0 (Version None)
Quarter: 2011Q3

REPORT INFORMATION
  Report Type: 
  Country: None (occurrence: None)
  Receive Date: 20110727
  Receipt Date: 20110727
  Transmission Date: 20111222
  Serious: Yes (Disabling)
  Sender: FDA-Public Use
  Company Number: None

PATIENT
  Sex: Female
  Weight: 83.914 kg

DRUGS (2)
  1. RIBAVIRIN [Suspect]
     Indication: HEPATITIS CHRONIC ACTIVE
     Dosage: 2 PILLS
     Route: 048
     Dates: start: 20070501, end: 20090401
  2. INTERFERON [Concomitant]
     Dosage: 1 SHOT
     Route: 058
     Dates: start: 20070501, end: 20090401

REACTIONS (12)
  - RHEUMATOID FACTOR INCREASED [None]
  - VISION BLURRED [None]
  - C-REACTIVE PROTEIN INCREASED [None]
  - BLOOD ALBUMIN DECREASED [None]
  - FIBROMYALGIA [None]
  - VITAMIN D DECREASED [None]
  - ARTHRALGIA [None]
  - INFLUENZA [None]
  - CONSTIPATION [None]
  - MIGRAINE [None]
  - BLOOD CALCIUM DECREASED [None]
  - SLEEP APNOEA SYNDROME [None]
